FAERS Safety Report 19607077 (Version 2)
Quarter: 2022Q2

REPORT INFORMATION
  Report Type: Spontaneous
  Country: PL (occurrence: PL)
  Receive Date: 20210726
  Receipt Date: 20220412
  Transmission Date: 20220721
  Serious: No
  Sender: FDA-Public Use
  Company Number: PL-BAYER-2021-180153

PATIENT
  Age: 74 Year

DRUGS (2)
  1. XARELTO [Suspect]
     Active Substance: RIVAROXABAN
     Indication: Product used for unknown indication
     Dosage: 15 MG, BID
     Route: 048
     Dates: start: 202003
  2. XARELTO [Suspect]
     Active Substance: RIVAROXABAN
     Dosage: DAILY DOSE 20 MG
     Route: 048
     Dates: start: 202003

REACTIONS (1)
  - Off label use [Unknown]
